FAERS Safety Report 18860040 (Version 2)
Quarter: 2021Q1

REPORT INFORMATION
  Report Type: Spontaneous
  Country: AU (occurrence: AU)
  Receive Date: 20210208
  Receipt Date: 20210223
  Transmission Date: 20210420
  Serious: No
  Sender: FDA-Public Use
  Company Number: AU-PFIZER INC-2021047816

PATIENT
  Age: 72 Year
  Sex: Female

DRUGS (1)
  1. ENBREL [Suspect]
     Active Substance: ETANERCEPT
     Indication: RHEUMATOID ARTHRITIS
     Dosage: UNK
     Dates: start: 202012

REACTIONS (4)
  - Device issue [Unknown]
  - Injection site bruising [Unknown]
  - Incorrect dose administered by device [Unknown]
  - Device use error [Unknown]

NARRATIVE: CASE EVENT DATE: 20210120
